FAERS Safety Report 17724752 (Version 2)
Quarter: 2020Q2

REPORT INFORMATION
  Report Type: Report from Study
  Country: IN (occurrence: IN)
  Receive Date: 20200429
  Receipt Date: 20200615
  Transmission Date: 20200714
  Serious: Yes (Other)
  Sender: FDA-Public Use
  Company Number: NVSC2020IN004187

PATIENT
  Age: 65 Year
  Sex: Male
  Weight: 69 kg

DRUGS (3)
  1. RECLIMET [Concomitant]
     Dosage: UNK UNK, QD (1-0-0)
     Route: 048
  2. RECLIMET [Concomitant]
     Indication: PRODUCT USED FOR UNKNOWN INDICATION
     Dosage: UNK UNK, BID, PRE-MEAL
     Route: 048
  3. GALVUS MET [Suspect]
     Active Substance: METFORMIN HYDROCHLORIDE\VILDAGLIPTIN
     Indication: DIABETES MELLITUS
     Dosage: 1 DF (METFORMIN 500 OT, VILDAGLIPTIN 50 OT), QD (0-1-0), POST MEAL (SINCE 2 YEARS)
     Route: 048

REACTIONS (7)
  - Blood pressure systolic increased [Unknown]
  - Pain [Unknown]
  - Asthenia [Unknown]
  - Hyperglycaemia [Unknown]
  - Blood pressure decreased [Unknown]
  - Sleep disorder [Unknown]
  - Balance disorder [Unknown]

NARRATIVE: CASE EVENT DATE: 20200115
